FAERS Safety Report 4842961-2 (Version None)
Quarter: 2005Q4

REPORT INFORMATION
  Report Type: 
  Country: None (occurrence: None)
  Receive Date: 20051201
  Receipt Date: 20051121
  Transmission Date: 20060501
  Serious: Yes (Death, Hospitalization)
  Sender: FDA-Public Use
  Company Number: KR-SANOFI-SYNTHELABO-A01200508031

PATIENT
  Age: 40 Year
  Sex: Female

DRUGS (7)
  1. CLOPIDOGREL BISULFATE [Suspect]
     Indication: CORONARY ANGIOPLASTY
     Dosage: LOADING DOSE 300 MG THEN 75 MG/DAY
     Route: 048
  2. CLOPIDOGREL BISULFATE [Suspect]
     Indication: ANGIOPLASTY
     Dosage: LOADING DOSE 300 MG THEN 75 MG/DAY
     Route: 048
  3. CLOPIDOGREL BISULFATE [Suspect]
     Route: 048
  4. CLOPIDOGREL BISULFATE [Suspect]
     Route: 048
  5. ASPIRIN [Suspect]
     Indication: THROMBOSIS PROPHYLAXIS
     Route: 065
  6. TEICOPLANIN [Suspect]
     Dosage: LOADING DOSE UNK
  7. TEICOPLANIN [Suspect]
     Dosage: 200 MG / 72 H

REACTIONS (8)
  - ACUTE RESPIRATORY FAILURE [None]
  - AGRANULOCYTOSIS [None]
  - ANAEMIA [None]
  - CORONARY ARTERY STENOSIS [None]
  - NEUTROPENIA [None]
  - PNEUMONIA ASPIRATION [None]
  - POSTOPERATIVE WOUND INFECTION [None]
  - THROMBOCYTOPENIA [None]
